FAERS Safety Report 7814084-1 (Version None)
Quarter: 2011Q4

REPORT INFORMATION
  Report Type: 
  Country: None (occurrence: None)
  Receive Date: 20111011
  Receipt Date: 20111005
  Transmission Date: 20120403
  Serious: Yes (Hospitalization)
  Sender: FDA-Public Use
  Company Number: DKLU1073648

PATIENT
  Age: 42 Year
  Sex: Male

DRUGS (1)
  1. SABRIL [Suspect]
     Indication: COMPLEX PARTIAL SEIZURES
     Dosage: 500 MG MILLIGRAM (S), 1 IN 1 D, ORAL
     Route: 048

REACTIONS (1)
  - ROAD TRAFFIC ACCIDENT [None]
